FAERS Safety Report 5021108-6 (Version None)
Quarter: 2006Q2

REPORT INFORMATION
  Report Type: 
  Country: None (occurrence: None)
  Receive Date: 20060608
  Receipt Date: 20060602
  Transmission Date: 20061013
  Serious: Yes (Life-Threatening, Hospitalization, Disabling, Other)
  Sender: FDA-Public Use
  Company Number: US-MERCK-0606USA00439

PATIENT
  Age: 69 Year
  Sex: Male

DRUGS (2)
  1. FOSAMAX [Suspect]
     Indication: BONE DENSITY DECREASED
     Route: 048
     Dates: start: 20020101, end: 20040101
  2. FOSAMAX [Suspect]
     Route: 048
     Dates: end: 20060101

REACTIONS (3)
  - BONE SARCOMA [None]
  - FALL [None]
  - LUNG DISORDER [None]
